FAERS Safety Report 23972842 (Version 4)
Quarter: 2024Q4

REPORT INFORMATION
  Report Type: Spontaneous
  Country: US (occurrence: US)
  Receive Date: 20240613
  Receipt Date: 20241120
  Transmission Date: 20250115
  Serious: No
  Sender: AMGEN
  Company Number: US-AMGEN-USASP2024116471

PATIENT
  Age: 79 Year
  Sex: Female

DRUGS (1)
  1. TEPEZZA [Suspect]
     Active Substance: TEPROTUMUMAB-TRBW
     Indication: Endocrine ophthalmopathy
     Dosage: UNK, Q3WK (1X EVERY 3 WEEKS FOR 8 INFUSIONS )
     Route: 042
     Dates: start: 20240319, end: 20240814

REACTIONS (6)
  - Muscle spasms [Unknown]
  - Fatigue [Unknown]
  - Headache [Unknown]
  - Urinary tract infection [Unknown]
  - Drug ineffective [Unknown]
  - Onychoclasis [Not Recovered/Not Resolved]

NARRATIVE: CASE EVENT DATE: 20240101
